FAERS Safety Report 16805005 (Version 1)
Quarter: 2019Q3

REPORT INFORMATION
  Report Type: Spontaneous
  Country: IT (occurrence: IT)
  Receive Date: 20190913
  Receipt Date: 20190913
  Transmission Date: 20191005
  Serious: Yes (Other)
  Sender: FDA-Public Use
  Company Number: IT-PFIZER INC-2019396824

PATIENT
  Age: 71 Year
  Sex: Female

DRUGS (2)
  1. ZITROMAX [Suspect]
     Active Substance: AZITHROMYCIN
     Indication: INFECTION
     Dosage: 1 DF, 1X/DAY
     Route: 048
  2. ZITROMAX [Suspect]
     Active Substance: AZITHROMYCIN
     Indication: ARTHROPOD BITE

REACTIONS (2)
  - Hypersensitivity [Unknown]
  - Erythema [Unknown]

NARRATIVE: CASE EVENT DATE: 20190828
